FAERS Safety Report 4542958-6 (Version None)
Quarter: 2004Q4

REPORT INFORMATION
  Report Type: 
  Country: None (occurrence: None)
  Receive Date: 20041229
  Receipt Date: 20041216
  Transmission Date: 20050328
  Serious: Yes (Hospitalization)
  Sender: FDA-Public Use
  Company Number: 2004-BP-14137BP(0)

PATIENT
  Age: 68 Year
  Sex: Male

DRUGS (1)
  1. MOBIC [Suspect]
     Indication: LOCALISED OSTEOARTHRITIS
     Dosage: (NR 15 MG QOD) PO
     Route: 048
     Dates: end: 20041001

REACTIONS (5)
  - BLADDER OBSTRUCTION [None]
  - HAEMOGLOBIN DECREASED [None]
  - HAEMORRHAGE URINARY TRACT [None]
  - POST PROCEDURAL HAEMORRHAGE [None]
  - URINARY RETENTION [None]
